FAERS Safety Report 5441651-5 (Version None)
Quarter: 2007Q3

REPORT INFORMATION
  Report Type: 
  Country: None (occurrence: None)
  Receive Date: 20070829
  Receipt Date: 20070814
  Transmission Date: 20080115
  Serious: Yes (Hospitalization)
  Sender: FDA-Public Use
  Company Number: 2007RR-08458

PATIENT
  Age: 63 Year
  Sex: Male

DRUGS (3)
  1. FLECAINIDE (FLECAINIDE) UNKNOWN [Suspect]
     Indication: TACHYCARDIA
     Dosage: 100 MG, BID, INTRAVENOUS
     Route: 042
  2. BENDROFLUMETHIAZIDE (BENDROFLUAZIDE) [Suspect]
     Indication: HYPERTENSION
     Dosage: 2.5 MG, QD, INTRAVENOUS
     Route: 042
  3. FELODIPINE [Concomitant]

REACTIONS (6)
  - CARDIOTOXICITY [None]
  - DRUG INTERACTION [None]
  - ELECTROCARDIOGRAM QRS COMPLEX PROLONGED [None]
  - HYPOKALAEMIA [None]
  - HYPONATRAEMIA [None]
  - SYNCOPE [None]
